FAERS Safety Report 21028069 (Version 1)
Quarter: 2022Q3

REPORT INFORMATION
  Report Type: Spontaneous
  Country: FR (occurrence: FR)
  Receive Date: 20220630
  Receipt Date: 20220630
  Transmission Date: 20221027
  Serious: Yes (Hospitalization, Other)
  Sender: FDA-Public Use
  Company Number: None

PATIENT
  Age: 73 Year
  Sex: Male
  Weight: 59 kg

DRUGS (6)
  1. AMIODARONE [Suspect]
     Active Substance: AMIODARONE
     Indication: Atrial fibrillation
     Dosage: 200 MG, QD
     Route: 048
     Dates: start: 20210722, end: 20220508
  2. AMOXICILLIN [Suspect]
     Active Substance: AMOXICILLIN
     Indication: Lung disorder
     Dosage: UNK
     Route: 048
     Dates: start: 20220503, end: 20220507
  3. SIMVASTATIN [Suspect]
     Active Substance: SIMVASTATIN
     Indication: Prophylaxis
     Dosage: 10 MG, QD
     Route: 048
     Dates: start: 2015, end: 2022
  4. MEGLUMINE [Suspect]
     Active Substance: MEGLUMINE
     Indication: Cough
     Dosage: UNK
     Route: 048
     Dates: start: 20220503, end: 20220507
  5. TIXOCORTOL PIVALATE [Suspect]
     Active Substance: TIXOCORTOL PIVALATE
     Indication: Rhinorrhoea
     Dosage: UNK
     Route: 045
     Dates: start: 20220503, end: 20220507
  6. RHINOCORT [Suspect]
     Active Substance: BUDESONIDE
     Indication: Rhinitis allergic
     Dosage: UNK
     Route: 045
     Dates: end: 20220507

REACTIONS (2)
  - Interstitial lung disease [Recovering/Resolving]
  - Cholestatic liver injury [Recovering/Resolving]

NARRATIVE: CASE EVENT DATE: 20220507
